FAERS Safety Report 23169075 (Version 1)
Quarter: 2023Q4

REPORT INFORMATION
  Report Type: Spontaneous
  Country: US (occurrence: US)
  Receive Date: 20231110
  Receipt Date: 20231110
  Transmission Date: 20240109
  Serious: No
  Sender: FDA-Public Use
  Company Number: US-Accord-280935

PATIENT
  Sex: Female
  Weight: 72.57 kg

DRUGS (3)
  1. SPIRONOLACTONE [Suspect]
     Active Substance: SPIRONOLACTONE
     Indication: Product used for unknown indication
     Dosage: TWICE DAILY
     Route: 048
     Dates: start: 202110
  2. ESTRADIOL [Concomitant]
     Active Substance: ESTRADIOL
     Route: 048
  3. PROGESTERONE [Concomitant]
     Active Substance: PROGESTERONE
     Route: 048

REACTIONS (4)
  - Product odour abnormal [Unknown]
  - Disorientation [Unknown]
  - Malaise [Unknown]
  - Breath odour [Not Recovered/Not Resolved]
